FAERS Safety Report 18486479 (Version 1)
Quarter: 2020Q4

REPORT INFORMATION
  Report Type: Spontaneous
  Country: US (occurrence: US)
  Receive Date: 20201110
  Receipt Date: 20201110
  Transmission Date: 20210114
  Serious: No
  Sender: FDA-Public Use
  Company Number: None

PATIENT
  Sex: Female
  Weight: 48.15 kg

DRUGS (1)
  1. XIFAXAN [Suspect]
     Active Substance: RIFAXIMIN

REACTIONS (6)
  - Tear discolouration [None]
  - Yellow skin [None]
  - Device colour issue [None]
  - Ocular icterus [None]
  - Saliva discolouration [None]
  - Chromaturia [None]
